FAERS Safety Report 7519631-5 (Version None)
Quarter: 2011Q2

REPORT INFORMATION
  Report Type: 
  Country: None (occurrence: None)
  Receive Date: 20110602
  Receipt Date: 20110527
  Transmission Date: 20111010
  Serious: Yes (Hospitalization)
  Sender: FDA-Public Use
  Company Number: A0929400A

PATIENT
  Sex: Male
  Weight: 100 kg

DRUGS (1)
  1. VENTOLIN [Suspect]
     Indication: CHRONIC OBSTRUCTIVE PULMONARY DISEASE
     Dosage: 100MCG UNKNOWN
     Route: 055

REACTIONS (4)
  - DYSPNOEA [None]
  - HEART RATE IRREGULAR [None]
  - DRUG INEFFECTIVE [None]
  - HEART RATE INCREASED [None]
